FAERS Safety Report 7820955-2 (Version None)
Quarter: 2011Q4

REPORT INFORMATION
  Report Type: 
  Country: None (occurrence: None)
  Receive Date: 20111018
  Receipt Date: 20111011
  Transmission Date: 20120403
  Serious: Yes (Death, Hospitalization)
  Sender: FDA-Public Use
  Company Number: DE-GLAXOSMITHKLINE-D0073000A

PATIENT
  Sex: Male

DRUGS (14)
  1. PREDNISOLONE [Suspect]
     Indication: CHRONIC OBSTRUCTIVE PULMONARY DISEASE
     Dosage: 10MG PER DAY
     Route: 065
     Dates: start: 20090408
  2. TORSEMIDE [Suspect]
     Indication: CARDIAC FAILURE
     Dosage: 10MG PER DAY
     Route: 048
     Dates: start: 20070420
  3. RASILEZ [Suspect]
     Indication: HYPERTENSION
     Dosage: 150MG PER DAY
     Route: 048
     Dates: start: 20081021
  4. SIMVASTATIN [Concomitant]
     Dosage: 10MG PER DAY
     Route: 065
     Dates: start: 20080527
  5. PANTOPRAZOLE SODIUM [Concomitant]
     Dosage: 20MG PER DAY
     Route: 065
     Dates: start: 20090408
  6. VIANI FORTE [Suspect]
     Indication: CHRONIC OBSTRUCTIVE PULMONARY DISEASE
     Route: 065
     Dates: start: 20060315, end: 20090630
  7. AMLODIPINE [Suspect]
     Indication: HYPERTENSION
     Dosage: 10MG PER DAY
     Route: 048
     Dates: start: 20070430, end: 20090630
  8. MOLSIDOMIN [Suspect]
     Indication: CORONARY ARTERY DISEASE
     Dosage: 4MG PER DAY
     Route: 048
     Dates: start: 20070420
  9. SALMETEROL [Suspect]
     Indication: CHRONIC OBSTRUCTIVE PULMONARY DISEASE
     Dosage: 550MG PER DAY
     Route: 048
     Dates: start: 20070615, end: 20090630
  10. CLONIDINE HCL [Suspect]
     Indication: HYPERTENSION
     Dosage: .075MG PER DAY
     Route: 048
     Dates: start: 20051227
  11. FOSINOPRIL SODIUM [Suspect]
     Dosage: 10MG PER DAY
     Route: 048
     Dates: start: 20070420
  12. ACC LONG [Concomitant]
     Route: 065
     Dates: start: 20090420
  13. ALLOPURINOL [Concomitant]
     Route: 065
     Dates: start: 20051227
  14. ATROVENT [Concomitant]
     Route: 065
     Dates: start: 20060315

REACTIONS (1)
  - COR PULMONALE CHRONIC [None]
